FAERS Safety Report 24712214 (Version 1)
Quarter: 2024Q4

REPORT INFORMATION
  Report Type: Report from Study
  Country: CA (occurrence: CA)
  Receive Date: 20241209
  Receipt Date: 20241209
  Transmission Date: 20250114
  Serious: Yes (Other)
  Sender: ABBVIE
  Company Number: CA-ABBVIE-6036003

PATIENT
  Sex: Female

DRUGS (1)
  1. RINVOQ [Suspect]
     Active Substance: UPADACITINIB
     Indication: Dermatitis atopic
     Dosage: FORM STRENGTH: 30 MILLIGRAM
     Route: 048

REACTIONS (4)
  - Haematemesis [Recovered/Resolved]
  - Mallory-Weiss syndrome [Recovered/Resolved]
  - Oesophagitis [Recovered/Resolved]
  - Haemorrhage [Recovered/Resolved]
